FAERS Safety Report 5821573-8 (Version None)
Quarter: 2008Q3

REPORT INFORMATION
  Report Type: 
  Country: None (occurrence: None)
  Receive Date: 20080724
  Receipt Date: 20080718
  Transmission Date: 20090109
  Serious: Yes (Other)
  Sender: FDA-Public Use
  Company Number: PHHY2008JP09698

PATIENT
  Sex: Female
  Weight: 44 kg

DRUGS (10)
  1. ZADITEN [Suspect]
     Indication: ECZEMA ASTEATOTIC
     Dosage: 2 MG/DAY
     Route: 048
     Dates: start: 20071226, end: 20080528
  2. ONON [Suspect]
     Indication: ASTHMA
     Dosage: 500 MG/DAY
     Route: 048
     Dates: start: 20030407
  3. ENALAPRIL MALEATE [Concomitant]
     Indication: HYPERTENSION
     Dosage: 10 MG
     Route: 048
     Dates: start: 20040402
  4. CORINAEL [Concomitant]
     Indication: HYPERTENSION
     Dosage: 20 MG
     Route: 048
     Dates: start: 20040402
  5. FAMOTIDINE [Concomitant]
     Indication: GASTRIC ULCER
     Dosage: 40 MG
     Route: 048
     Dates: start: 20030827
  6. UNICON (THEOPHYLLINE) [Concomitant]
     Indication: ASTHMA
     Dosage: 400 MG
     Route: 048
     Dates: start: 20040714
  7. SENNOSIDE [Concomitant]
     Indication: CONSTIPATION
     Dosage: 12 MG
     Route: 048
     Dates: start: 20030124
  8. EPINASTINE HYDROCHLORIDE [Concomitant]
     Indication: ECZEMA
     Dosage: 20 MG
     Route: 048
     Dates: start: 20030212, end: 20071225
  9. NEOMALLERMIN TR [Concomitant]
     Indication: ECZEMA
     Dosage: 6 MG
     Route: 048
     Dates: start: 20021225, end: 20071225
  10. BETAMETHASONE BUTYRATE PROPIONATE [Concomitant]
     Indication: ECZEMA
     Dosage: 0.7 G
     Route: 061
     Dates: start: 20030319

REACTIONS (7)
  - BLOOD CREATININE INCREASED [None]
  - BLOOD GLUCOSE INCREASED [None]
  - BLOOD PRESSURE DECREASED [None]
  - HEADACHE [None]
  - LOSS OF CONSCIOUSNESS [None]
  - PROTEIN URINE PRESENT [None]
  - RENAL DISORDER [None]
